FAERS Safety Report 7742700-1 (Version None)
Quarter: 2011Q3

REPORT INFORMATION
  Report Type: 
  Country: None (occurrence: None)
  Receive Date: 20110912
  Receipt Date: 20110831
  Transmission Date: 20111222
  Serious: Yes (Hospitalization, Other)
  Sender: FDA-Public Use
  Company Number: JP-JNJFOC-20110709759

PATIENT
  Sex: Male
  Weight: 66 kg

DRUGS (11)
  1. NITRAZEPAM [Concomitant]
     Route: 048
     Dates: start: 20021106, end: 20101210
  2. INVEGA [Suspect]
     Route: 048
     Dates: start: 20110630, end: 20110708
  3. RISPERIDAL ORO DISPERSIBLE [Suspect]
     Route: 048
     Dates: start: 20101210, end: 20110411
  4. LEVOMEPROMAZINE MALEATE [Suspect]
     Indication: SCHIZOPHRENIA
     Route: 048
     Dates: start: 20110308
  5. INVEGA [Suspect]
     Indication: SCHIZOPHRENIA
     Route: 048
     Dates: start: 20110602, end: 20110630
  6. INVEGA [Suspect]
     Route: 048
     Dates: start: 20110630, end: 20110630
  7. RISPERIDAL ORO DISPERSIBLE [Suspect]
     Indication: SCHIZOPHRENIA
     Route: 048
     Dates: start: 20021106, end: 20101210
  8. LEVOMEPROMAZINE MALEATE [Suspect]
     Indication: INSOMNIA
     Route: 048
     Dates: start: 20110308
  9. RISPERDAL [Suspect]
     Indication: SCHIZOPHRENIA
     Route: 048
     Dates: start: 20110411, end: 20110602
  10. PROMETHAZINE HCL [Concomitant]
     Indication: INSOMNIA
     Route: 048
     Dates: start: 20110308
  11. LENDEM [Concomitant]
     Route: 048
     Dates: start: 20021106, end: 20101210

REACTIONS (5)
  - WATER INTOXICATION [None]
  - BLOOD GLUCOSE INCREASED [None]
  - CONVULSION [None]
  - DRUG INEFFECTIVE [None]
  - RHABDOMYOLYSIS [None]
